FAERS Safety Report 20502863 (Version 3)
Quarter: 2022Q1

REPORT INFORMATION
  Report Type: Report from Study
  Country: US (occurrence: US)
  Receive Date: 20220222
  Receipt Date: 20220324
  Transmission Date: 20220423
  Serious: Yes (Hospitalization, Other)
  Sender: FDA-Public Use
  Company Number: US-GILEAD-2022-0570454

PATIENT
  Age: 78 Year
  Sex: Female
  Weight: 61.23 kg

DRUGS (4)
  1. IDELALISIB [Suspect]
     Active Substance: IDELALISIB
     Indication: Follicular lymphoma stage I
     Dosage: 150 MG, BID
     Route: 048
     Dates: start: 20170602, end: 202201
  2. IDELALISIB [Suspect]
     Active Substance: IDELALISIB
     Indication: Neoplasm malignant
  3. MINERALS\VITAMINS [Concomitant]
     Active Substance: MINERALS\VITAMINS
  4. VITAMINS NOS [Concomitant]
     Active Substance: VITAMINS

REACTIONS (2)
  - Gastrointestinal stromal tumour [Recovering/Resolving]
  - Intentional dose omission [Recovered/Resolved]

NARRATIVE: CASE EVENT DATE: 20220211
